FAERS Safety Report 9637826 (Version 1)
Quarter: 2013Q4

REPORT INFORMATION
  Report Type: Spontaneous
  Country: GB (occurrence: GB)
  Receive Date: 20131022
  Receipt Date: 20131022
  Transmission Date: 20140711
  Serious: Yes (Disabling, Other)
  Sender: FDA-Public Use
  Company Number: GB-ASTELLAS-2013US010900

PATIENT
  Age: 59 Year
  Sex: Male

DRUGS (3)
  1. TARCEVA [Suspect]
     Indication: PRODUCT USED FOR UNKNOWN INDICATION
     Dosage: UNK
     Route: 065
  2. TARCEVA [Suspect]
     Dosage: 100 MG, UNKNOWN/D
     Route: 065
     Dates: start: 20130920
  3. GABAPENTIN [Concomitant]
     Indication: PRODUCT USED FOR UNKNOWN INDICATION
     Dosage: 100 MG, TID
     Route: 065
     Dates: start: 20130827

REACTIONS (9)
  - Pain of skin [Recovering/Resolving]
  - Rash pruritic [Recovering/Resolving]
  - Rash erythematous [Recovering/Resolving]
  - Depressed mood [Recovering/Resolving]
  - Rash pustular [Recovering/Resolving]
  - Rash pustular [Recovering/Resolving]
  - Rash [Recovering/Resolving]
  - Rash pustular [Unknown]
  - Fatigue [Unknown]
